FAERS Safety Report 18252135 (Version 1)
Quarter: 2020Q3

REPORT INFORMATION
  Report Type: Spontaneous
  Country: US (occurrence: US)
  Receive Date: 20200910
  Receipt Date: 20200910
  Transmission Date: 20201103
  Serious: Yes (Life-Threatening, Hospitalization)
  Sender: FDA-Public Use
  Company Number: None

PATIENT
  Age: 37 Year
  Sex: Female
  Weight: 61.2 kg

DRUGS (5)
  1. BACLOFEN. [Suspect]
     Active Substance: BACLOFEN
  2. CELEXA [Concomitant]
     Active Substance: CITALOPRAM HYDROBROMIDE
  3. GABAPENTIN. [Suspect]
     Active Substance: GABAPENTIN
     Indication: NECK PAIN
     Dosage: ?          QUANTITY:30 TABLET(S);?
     Route: 048
     Dates: start: 20200803, end: 20200815
  4. HYDROXYZINE [Concomitant]
     Active Substance: HYDROXYZINE HYDROCHLORIDE
  5. BUSPAR [Concomitant]
     Active Substance: BUSPIRONE HYDROCHLORIDE

REACTIONS (12)
  - Anxiety [None]
  - Tachyphrenia [None]
  - Drug interaction [None]
  - Suicidal ideation [None]
  - Crying [None]
  - Panic attack [None]
  - Insomnia [None]
  - Irritability [None]
  - Pain [None]
  - Feeling of despair [None]
  - Depression [None]
  - Mental disability [None]

NARRATIVE: CASE EVENT DATE: 20200818
